FAERS Safety Report 7517926-2 (Version None)
Quarter: 2011Q2

REPORT INFORMATION
  Report Type: 
  Country: None (occurrence: None)
  Receive Date: 20110527
  Receipt Date: 20110527
  Transmission Date: 20111010
  Serious: No
  Sender: FDA-Public Use
  Company Number: None

PATIENT
  Weight: 102.3 kg

DRUGS (1)
  1. BACLOFEN [Suspect]
     Indication: MULTIPLE SCLEROSIS
     Dosage: 20 MG PO
     Route: 048
     Dates: start: 20110513, end: 20110513

REACTIONS (1)
  - PRODUCT QUALITY ISSUE [None]
